FAERS Safety Report 12535168 (Version 2)
Quarter: 2020Q2

REPORT INFORMATION
  Report Type: Spontaneous
  Country: GB (occurrence: GB)
  Receive Date: 20160707
  Receipt Date: 20200512
  Transmission Date: 20200713
  Serious: Yes (Other)
  Sender: FDA-Public Use
  Company Number: GB-AUROBINDO-AUR-APL-2016-08558

PATIENT
  Age: 36 Year
  Sex: Male

DRUGS (11)
  1. PAROXETINE. [Suspect]
     Active Substance: PAROXETINE
     Indication: DEPRESSION
     Dosage: UNK
     Route: 065
     Dates: start: 19940926, end: 20040823
  2. PROPRANOLOL [Concomitant]
     Active Substance: PROPRANOLOL HYDROCHLORIDE
     Indication: ANXIETY
     Route: 065
     Dates: start: 200404
  3. SEROXAT [Suspect]
     Active Substance: PAROXETINE HYDROCHLORIDE
     Indication: DEPRESSION
     Dosage: 40 MG, QD
     Route: 048
     Dates: start: 20011017, end: 20040128
  4. SEROXAT [Suspect]
     Active Substance: PAROXETINE HYDROCHLORIDE
     Dosage: 20 MG, QD
     Route: 048
     Dates: start: 20000124
  5. INDERAL [Concomitant]
     Active Substance: PROPRANOLOL HYDROCHLORIDE
     Indication: MIGRAINE
     Dosage: 80 MG, 1D
     Route: 065
     Dates: start: 200504
  6. PROPRANOLOL [Concomitant]
     Active Substance: PROPRANOLOL HYDROCHLORIDE
     Indication: MIGRAINE
  7. DICLOFENAC [Concomitant]
     Active Substance: DICLOFENAC
     Indication: BACK PAIN
     Dosage: 25 MG, 3 TIMES A DAY
     Route: 065
  8. INDERAL [Concomitant]
     Active Substance: PROPRANOLOL HYDROCHLORIDE
     Indication: ANXIETY
  9. SEROXAT [Suspect]
     Active Substance: PAROXETINE HYDROCHLORIDE
     Dosage: UNK
     Route: 065
     Dates: start: 1990, end: 20040109
  10. PAROXETINE. [Suspect]
     Active Substance: PAROXETINE
     Dosage: 40 MG, QD
     Route: 065
     Dates: start: 20011017, end: 20040128
  11. COCODAMOL [Concomitant]
     Active Substance: ACETAMINOPHEN\CODEINE PHOSPHATE
     Indication: HEADACHE
     Route: 065

REACTIONS (29)
  - Suicidal ideation [Unknown]
  - Headache [Unknown]
  - Fall [Unknown]
  - Hyperhidrosis [Unknown]
  - Paraesthesia [Unknown]
  - Loss of consciousness [Unknown]
  - Sensory disturbance [Unknown]
  - Musculoskeletal stiffness [Unknown]
  - Sleep disorder [Unknown]
  - Confusional state [Unknown]
  - Anger [Unknown]
  - Myalgia [Unknown]
  - Fatigue [Unknown]
  - Anxiety [Unknown]
  - Depressed mood [Unknown]
  - Arthralgia [Unknown]
  - Depression [Unknown]
  - Body temperature fluctuation [Unknown]
  - Dizziness [Unknown]
  - Amnesia [Unknown]
  - Nausea [Unknown]
  - Mouth ulceration [Unknown]
  - Feeling hot [Unknown]
  - Cold sweat [Unknown]
  - Drug withdrawal syndrome [Unknown]
  - Balance disorder [Unknown]
  - Vision blurred [Unknown]
  - Metamorphopsia [Unknown]
  - Weight decreased [Unknown]

NARRATIVE: CASE EVENT DATE: 2001
